FAERS Safety Report 10575350 (Version 2)
Quarter: 2014Q4

REPORT INFORMATION
  Report Type: Spontaneous
  Country: JP (occurrence: None)
  Receive Date: 20141107
  Receipt Date: 20141114
  Transmission Date: 20150529
  Serious: No
  Sender: FDA-Public Use
  Company Number: JP-2014-4206

PATIENT
  Age: 61 Year
  Sex: Female

DRUGS (3)
  1. VINORELBINE INN (VINORELBINE TARTRATE) SOLUTION FOR INJECTION [Suspect]
     Active Substance: VINORELBINE TARTRATE
     Indication: BREAST CANCER
  2. LETROZOLE (LETROZOLE) [Suspect]
     Active Substance: LETROZOLE
     Indication: BREAST CANCER
  3. TRASTUZUMAB [Suspect]
     Active Substance: TRASTUZUMAB
     Indication: BREAST CANCER

REACTIONS (5)
  - Pleural effusion [None]
  - Neutropenia [None]
  - Cardiomyopathy [None]
  - Cardiac failure [None]
  - Alopecia [None]
